FAERS Safety Report 8499543-3 (Version None)
Quarter: 2012Q3

REPORT INFORMATION
  Report Type: 
  Country: None (occurrence: None)
  Receive Date: 20120710
  Receipt Date: 20120702
  Transmission Date: 20120928
  Serious: Yes (Other)
  Sender: FDA-Public Use
  Company Number: GB-JNJFOC-20120406894

PATIENT
  Sex: Female
  Weight: 61 kg

DRUGS (3)
  1. STELARA [Suspect]
     Indication: PSORIASIS
     Route: 058
     Dates: start: 20120228
  2. ATARAX [Concomitant]
     Indication: PSORIASIS
     Route: 065
  3. STELARA [Suspect]
     Route: 058
     Dates: start: 20120424

REACTIONS (7)
  - PALPITATIONS [None]
  - VISION BLURRED [None]
  - LETHARGY [None]
  - TOOTH DISORDER [None]
  - HYPOAESTHESIA [None]
  - PANIC ATTACK [None]
  - DIZZINESS [None]
